FAERS Safety Report 9190704 (Version 1)
Quarter: 2013Q1

REPORT INFORMATION
  Report Type: Spontaneous
  Country: BR (occurrence: None)
  Receive Date: 20130322
  Receipt Date: 20130322
  Transmission Date: 20140127
  Serious: Yes (Hospitalization)
  Sender: FDA-Public Use
  Company Number: SYM-2013-01781

PATIENT
  Age: 69 Year
  Sex: Male

DRUGS (5)
  1. ENALAPRIL MALEATE [Suspect]
     Indication: HYPERTENSION
     Route: 048
     Dates: start: 2010
  2. PEGINTRON [Suspect]
     Indication: HEPATITIS C
     Route: 058
     Dates: start: 201211
  3. FLUDILAT [Suspect]
     Indication: VARICOSE VEIN
     Route: 048
     Dates: start: 2011
  4. RIBAVIRIN (RIBAVIRIN) [Concomitant]
  5. HYDROCHLOROTHIAZIDE (HYDROCHLOROTHIAZIDE) [Concomitant]

REACTIONS (11)
  - Hypertension [None]
  - Diarrhoea [None]
  - Vomiting [None]
  - Nausea [None]
  - Dysgeusia [None]
  - Ageusia [None]
  - Rash macular [None]
  - Eating disorder [None]
  - Pain [None]
  - Pyrexia [None]
  - Platelet count decreased [None]
